FAERS Safety Report 5576996-1 (Version None)
Quarter: 2007Q4

REPORT INFORMATION
  Report Type: 
  Country: None (occurrence: None)
  Receive Date: 20071228
  Receipt Date: 20071220
  Transmission Date: 20080405
  Serious: Yes (Hospitalization)
  Sender: FDA-Public Use
  Company Number: JP-ABBOTT-07P-087-0429632-00

PATIENT
  Age: 39 Year
  Sex: Male

DRUGS (4)
  1. LOPINAVIR AND RITONAVIR [Suspect]
     Indication: HIV INFECTION
     Route: 048
     Dates: start: 20060101, end: 20070127
  2. LOPINAVIR AND RITONAVIR [Suspect]
     Route: 048
     Dates: start: 20070218
  3. EMTRICITABINE W/TENOFOVIR [Suspect]
     Indication: HIV INFECTION
     Route: 048
     Dates: start: 20060101, end: 20070127
  4. EMTRICITABINE W/TENOFOVIR [Suspect]
     Route: 048
     Dates: start: 20070218

REACTIONS (2)
  - IMMUNE RECONSTITUTION SYNDROME [None]
  - MENINGITIS CRYPTOCOCCAL [None]
